FAERS Safety Report 7771544-X (Version None)
Quarter: 2011Q3

REPORT INFORMATION
  Report Type: 
  Country: None (occurrence: None)
  Receive Date: 20110922
  Receipt Date: 20100106
  Transmission Date: 20111222
  Serious: No
  Sender: FDA-Public Use
  Company Number: US-ASTRAZENECA-2008UW07403

PATIENT
  Age: 15913 Day
  Sex: Female
  Weight: 74.8 kg

DRUGS (7)
  1. SEROQUEL [Suspect]
     Indication: BIPOLAR DISORDER
     Route: 048
     Dates: start: 20050312
  2. ETODOLAC [Concomitant]
     Dates: start: 20050223
  3. CLONAZEPAM [Concomitant]
     Dates: start: 20050201
  4. PREVACID [Concomitant]
     Dates: start: 20050223
  5. LEXAPRO [Concomitant]
     Dates: start: 20041122
  6. SEROQUEL [Suspect]
     Indication: DEPRESSION
     Route: 048
     Dates: start: 20050312
  7. CYCLOBENZAPR [Concomitant]
     Dates: start: 20050223

REACTIONS (11)
  - BRUXISM [None]
  - NIGHTMARE [None]
  - DIABETES MELLITUS [None]
  - VISION BLURRED [None]
  - WEIGHT INCREASED [None]
  - INSULIN-REQUIRING TYPE 2 DIABETES MELLITUS [None]
  - DEPRESSED LEVEL OF CONSCIOUSNESS [None]
  - MANIA [None]
  - DIZZINESS [None]
  - MOOD SWINGS [None]
  - NIGHT SWEATS [None]
